FAERS Safety Report 16846499 (Version 1)
Quarter: 2019Q3

REPORT INFORMATION
  Report Type: Spontaneous
  Country: DE (occurrence: DE)
  Receive Date: 20190924
  Receipt Date: 20190924
  Transmission Date: 20191005
  Serious: Yes (Death, Hospitalization, Other)
  Sender: FDA-Public Use
  Company Number: DE-MYLANLABS-2019M1088703

PATIENT
  Age: 44 Year
  Sex: Female

DRUGS (7)
  1. BOSENTAN. [Suspect]
     Active Substance: BOSENTAN
     Indication: SYSTEMIC SCLERODERMA
     Dosage: UNK
     Route: 048
  2. CYCLOPHOSPHAMIDE. [Suspect]
     Active Substance: CYCLOPHOSPHAMIDE
     Indication: SYSTEMIC SCLERODERMA
     Dosage: UNK
     Route: 065
  3. SILDENAFIL. [Suspect]
     Active Substance: SILDENAFIL
     Indication: SYSTEMIC SCLERODERMA
     Dosage: UNK
     Route: 065
  4. CICLOSPORIN [Suspect]
     Active Substance: CYCLOSPORINE
     Indication: SYSTEMIC SCLERODERMA
     Dosage: UNK
     Route: 065
  5. PROSTAVASIN [Suspect]
     Active Substance: ALPROSTADIL ALFADEX
     Indication: SYSTEMIC SCLERODERMA
     Dosage: UNK
     Route: 065
  6. ILOMEDINE [Suspect]
     Active Substance: ILOPROST TROMETHAMINE
     Indication: SYSTEMIC SCLERODERMA
     Dosage: UNK
     Route: 065
  7. OPSUMIT [Suspect]
     Active Substance: MACITENTAN
     Indication: SYSTEMIC SCLERODERMA
     Dosage: UNK
     Route: 048

REACTIONS (14)
  - Myocardial fibrosis [Unknown]
  - Pneumonia [Unknown]
  - Sepsis [Unknown]
  - Respiratory failure [Unknown]
  - Disease progression [Unknown]
  - Galectin-3 increased [Unknown]
  - Multiple organ dysfunction syndrome [Fatal]
  - Right ventricular dilatation [Unknown]
  - Left ventricular dysfunction [Unknown]
  - Myocarditis [Unknown]
  - Systemic scleroderma [Unknown]
  - Ventricular hypokinesia [Unknown]
  - Cardiac dysfunction [Unknown]
  - Right ventricular failure [Unknown]
